FAERS Safety Report 6454620-3 (Version None)
Quarter: 2009Q4

REPORT INFORMATION
  Report Type: 
  Country: None (occurrence: None)
  Receive Date: 20091118
  Receipt Date: 20091104
  Transmission Date: 20100525
  Serious: Yes (Life-Threatening, Hospitalization, Other)
  Sender: FDA-Public Use
  Company Number: 002341

PATIENT
  Sex: Female
  Weight: 70 kg

DRUGS (12)
  1. LACOSAMIDE [Suspect]
     Indication: CONVULSION
     Dosage: 200 MG INTRAVENOUS (NOT OTHERWISE SPECIFIED)
     Route: 042
     Dates: start: 20091022, end: 20091023
  2. KEPPRA [Suspect]
     Indication: CONVULSION
     Dosage: ORAL
     Route: 048
  3. KEPPRA [Suspect]
     Indication: CONVULSION
     Dosage: INTRAVENOUS (NOT OTHERWISE SPECIFIED)
     Route: 042
  4. KETAMINE HCL [Concomitant]
  5. PROPOFOL [Concomitant]
  6. VERSED [Concomitant]
  7. PHENOBARBITAL [Concomitant]
  8. FOSPHENYTOIN [Concomitant]
  9. CYCLOPHOSPHAMIDE [Concomitant]
  10. FLAGYL [Concomitant]
  11. CIPRO XR [Concomitant]
  12. CELLCEPT [Concomitant]

REACTIONS (5)
  - BLOOD COUNT ABNORMAL [None]
  - CLOSTRIDIAL INFECTION [None]
  - PNEUMONIA [None]
  - STATUS EPILEPTICUS [None]
  - SWOLLEN TONGUE [None]
